FAERS Safety Report 6141020-9 (Version None)
Quarter: 2009Q2

REPORT INFORMATION
  Report Type: 
  Country: None (occurrence: None)
  Receive Date: 20090402
  Receipt Date: 20090327
  Transmission Date: 20091009
  Serious: Yes (Hospitalization, Other)
  Sender: FDA-Public Use
  Company Number: US-BAYER-200913877NA

PATIENT
  Age: 24 Year
  Sex: Female

DRUGS (1)
  1. YAZ [Suspect]
     Indication: CONTRACEPTION
     Route: 048
     Dates: start: 20081008, end: 20081120

REACTIONS (3)
  - ABORTION SPONTANEOUS [None]
  - CERVICAL DYSPLASIA [None]
  - PREGNANCY ON ORAL CONTRACEPTIVE [None]
